FAERS Safety Report 8266363-4 (Version None)
Quarter: 2012Q2

REPORT INFORMATION
  Report Type: 
  Country: None (occurrence: None)
  Receive Date: 20120406
  Receipt Date: 20120405
  Transmission Date: 20120825
  Serious: Yes (Death, Other)
  Sender: FDA-Public Use
  Company Number: JP-ABBOTT-12P-087-0922210-00

PATIENT
  Sex: Male
  Weight: 51.6 kg

DRUGS (5)
  1. HUMIRA [Suspect]
     Route: 058
  2. OPIUM TINCTURE [Concomitant]
     Indication: PRODUCT USED FOR UNKNOWN INDICATION
     Route: 048
  3. HUMIRA [Suspect]
     Indication: CROHN'S DISEASE
     Route: 058
     Dates: start: 20110118, end: 20110118
  4. WARFARIN SODIUM [Concomitant]
     Indication: THROMBOSIS PROPHYLAXIS
     Route: 048
  5. HUMIRA [Suspect]
     Route: 058
     Dates: end: 20110719

REACTIONS (2)
  - THROMBOSIS [None]
  - SUDDEN DEATH [None]
